FAERS Safety Report 20831146 (Version 3)
Quarter: 2024Q2

REPORT INFORMATION
  Report Type: Report from Study
  Country: US (occurrence: US)
  Receive Date: 20220515
  Receipt Date: 20240614
  Transmission Date: 20240716
  Serious: Yes (Other)
  Sender: FDA-Public Use
  Company Number: US-ABBVIE-22K-163-4326569-00

PATIENT
  Age: 62 Year
  Sex: Female

DRUGS (7)
  1. HUMIRA [Suspect]
     Active Substance: ADALIMUMAB
     Indication: Crohn^s disease
     Dosage: CITRATE FREE
     Route: 058
  2. HUMIRA [Suspect]
     Active Substance: ADALIMUMAB
     Dosage: CITRATE FREE
     Route: 058
  3. MODERNA COVID-19 VACCINE [Concomitant]
     Active Substance: ELASOMERAN
     Indication: COVID-19 immunisation
     Dosage: 1ST DOSE?ONE IN ONCE ADDED
     Route: 030
     Dates: start: 20210512, end: 20210512
  4. MODERNA COVID-19 VACCINE [Concomitant]
     Active Substance: ELASOMERAN
     Indication: COVID-19 immunisation
     Dosage: 2ND DOSE?ONE IN ONCE ADDED
     Route: 030
     Dates: start: 20210610, end: 20210610
  5. MODERNA COVID-19 VACCINE [Concomitant]
     Active Substance: ELASOMERAN
     Indication: COVID-19 immunisation
     Dosage: BOOSTER DOSE?ONE IN ONCE ADDED
     Route: 030
     Dates: start: 20211217, end: 20211217
  6. HYDROCODONE [Concomitant]
     Active Substance: HYDROCODONE
     Indication: Pain
  7. BACLOFEN [Concomitant]
     Active Substance: BACLOFEN
     Indication: Myalgia

REACTIONS (8)
  - Intervertebral disc disorder [Recovering/Resolving]
  - Swelling [Recovering/Resolving]
  - Irritable bowel syndrome [Recovering/Resolving]
  - Neck pain [Not Recovered/Not Resolved]
  - Scoliosis [Not Recovered/Not Resolved]
  - Muscle spasms [Not Recovered/Not Resolved]
  - Back pain [Not Recovered/Not Resolved]
  - Small intestinal resection [Recovered/Resolved]

NARRATIVE: CASE EVENT DATE: 20220216
